FAERS Safety Report 20167243 (Version 1)
Quarter: 2021Q4

REPORT INFORMATION
  Report Type: Spontaneous
  Country: US (occurrence: None)
  Receive Date: 20211208
  Receipt Date: 20211208
  Transmission Date: 20220303
  Serious: Yes (Other)
  Sender: FDA-Public Use
  Company Number: None

PATIENT
  Age: 41 Year
  Sex: Female
  Weight: 58.5 kg

DRUGS (3)
  1. BOTOX [Suspect]
     Active Substance: ONABOTULINUMTOXINA
     Indication: Migraine
     Dates: start: 20211203, end: 20211203
  2. BOTOX [Suspect]
     Active Substance: ONABOTULINUMTOXINA
     Indication: Skin wrinkling
  3. PROPRANOLOL [Concomitant]
     Active Substance: PROPRANOLOL HYDROCHLORIDE

REACTIONS (5)
  - Blood pressure increased [None]
  - Feeling abnormal [None]
  - Headache [None]
  - Chest pain [None]
  - Intentional product use issue [None]

NARRATIVE: CASE EVENT DATE: 20211203
